FAERS Safety Report 8452029-4 (Version None)
Quarter: 2012Q2

REPORT INFORMATION
  Report Type: 
  Country: None (occurrence: None)
  Receive Date: 20120620
  Receipt Date: 20120329
  Transmission Date: 20120825
  Serious: No
  Sender: FDA-Public Use
  Company Number: US-VERTEX PHARMACEUTICALS INC.-AE-2012-004564

PATIENT
  Sex: Male
  Weight: 84.898 kg

DRUGS (7)
  1. HYDROCODONE [Concomitant]
     Indication: PAIN
     Route: 048
  2. MILK THISTLE [Concomitant]
     Route: 048
  3. INCIVEK [Suspect]
     Indication: HEPATITIS C
     Route: 048
     Dates: start: 20120316
  4. RIBAVIRIN [Concomitant]
     Indication: HEPATITIS C
     Route: 048
     Dates: start: 20120316
  5. PEGASYS [Concomitant]
     Indication: HEPATITIS C
     Route: 058
     Dates: start: 20120316
  6. MULTI-VITAMIN [Concomitant]
  7. LUNESTA [Concomitant]
     Route: 048

REACTIONS (4)
  - DIARRHOEA [None]
  - VOMITING [None]
  - HAEMORRHOIDS [None]
  - NAUSEA [None]
